FAERS Safety Report 7343422-1 (Version None)
Quarter: 2011Q1

REPORT INFORMATION
  Report Type: 
  Country: None (occurrence: None)
  Receive Date: 20110310
  Receipt Date: 20110216
  Transmission Date: 20110831
  Serious: Yes (Hospitalization, Other)
  Sender: FDA-Public Use
  Company Number: US-BAYER-201031565NA

PATIENT
  Sex: Female

DRUGS (3)
  1. YAZ [Suspect]
     Indication: PRODUCT USED FOR UNKNOWN INDICATION
     Route: 048
     Dates: start: 20051101, end: 20080815
  2. YASMIN [Suspect]
     Indication: PRODUCT USED FOR UNKNOWN INDICATION
     Route: 048
     Dates: start: 20051101, end: 20080815
  3. LOVENOX [Suspect]

REACTIONS (4)
  - DEEP VEIN THROMBOSIS [None]
  - UNEVALUABLE EVENT [None]
  - PAIN [None]
  - OEDEMA PERIPHERAL [None]
